FAERS Safety Report 5682913-6 (Version None)
Quarter: 2008Q1

REPORT INFORMATION
  Report Type: 
  Country: None (occurrence: None)
  Receive Date: 20080327
  Receipt Date: 20080317
  Transmission Date: 20080703
  Serious: Yes (Hospitalization)
  Sender: FDA-Public Use
  Company Number: ES-JNJFOC-20080303762

PATIENT
  Age: 62 Year
  Sex: Male

DRUGS (6)
  1. TAVANIC [Suspect]
     Indication: LUNG INFECTION
     Route: 048
  2. COZAAR [Concomitant]
     Indication: HYPERTENSION
     Route: 048
  3. LEVOTHYROXINE SODIUM [Concomitant]
     Indication: HYPERTHYROIDISM
     Route: 048
  4. FENOFIBRATE SUPRA [Concomitant]
     Indication: METABOLIC SYNDROME
     Route: 048
  5. METFORMIN [Concomitant]
     Indication: DIABETES MELLITUS
     Route: 048
  6. ASPIRIN [Concomitant]
     Indication: METABOLIC SYNDROME
     Route: 048

REACTIONS (1)
  - RENAL TUBULAR NECROSIS [None]
